FAERS Safety Report 11112451 (Version 2)
Quarter: 2016Q1

REPORT INFORMATION
  Report Type: Spontaneous
  Country: DK (occurrence: DK)
  Receive Date: 20150514
  Receipt Date: 20160229
  Transmission Date: 20160525
  Serious: Yes (Death)
  Sender: FDA-Public Use
  Company Number: DK-ROCHE-1576061

PATIENT
  Age: 65 Year
  Sex: Male
  Weight: 80 kg

DRUGS (4)
  1. HERCEPTIN [Suspect]
     Active Substance: TRASTUZUMAB
     Indication: OESOPHAGEAL ADENOCARCINOMA STAGE III
     Dosage: DOSE: 500 MG I.V. / 4TH WEEK
     Route: 042
     Dates: start: 20150102
  2. CAPECITABINE. [Suspect]
     Active Substance: CAPECITABINE
     Indication: OESOPHAGEAL ADENOCARCINOMA STAGE III
     Dosage: ^ACTAVIS^ BRAND. DOSE FOR 14 DAYS
     Route: 048
     Dates: start: 20150102
  3. PANTOPRAZOL NATRIUM [Concomitant]
     Indication: REFLUX GASTRITIS
     Route: 065
     Dates: start: 201412
  4. OXALIPLATIN. [Suspect]
     Active Substance: OXALIPLATIN
     Indication: OESOPHAGEAL ADENOCARCINOMA STAGE III
     Dosage: DOSE: 260 MG I.V. / 4TH WEEK
     Route: 042
     Dates: start: 20150102

REACTIONS (2)
  - Brain injury [Fatal]
  - Cardiac arrest [Fatal]

NARRATIVE: CASE EVENT DATE: 20150422
